FAERS Safety Report 21855727 (Version 2)
Quarter: 2023Q1

REPORT INFORMATION
  Report Type: Spontaneous
  Country: CH (occurrence: CH)
  Receive Date: 20230112
  Receipt Date: 20230123
  Transmission Date: 20230417
  Serious: Yes (Hospitalization)
  Sender: FDA-Public Use
  Company Number: CH-TEVA-2023-CH-2844624

PATIENT
  Age: 36 Year
  Sex: Male

DRUGS (2)
  1. LEVOFLOXACIN [Suspect]
     Active Substance: LEVOFLOXACIN
     Indication: Bronchiolitis
     Route: 048
  2. ELEXACAFTOR\IVACAFTOR\TEZACAFTOR [Suspect]
     Active Substance: ELEXACAFTOR\IVACAFTOR\TEZACAFTOR
     Indication: Cystic fibrosis
     Route: 065

REACTIONS (5)
  - Bronchiolitis [Recovered/Resolved]
  - Pulmonary function test decreased [Recovered/Resolved]
  - Obstructive airways disorder [Recovered/Resolved]
  - Withdrawal syndrome [Recovered/Resolved]
  - Drug ineffective [Unknown]
